FAERS Safety Report 14935334 (Version 2)
Quarter: 2018Q2

REPORT INFORMATION
  Report Type: Report from Study
  Country: DE (occurrence: DE)
  Receive Date: 20180524
  Receipt Date: 20180601
  Transmission Date: 20180711
  Serious: Yes (Hospitalization)
  Sender: FDA-Public Use
  Company Number: DE-JNJFOC-20180532699

PATIENT
  Age: 81 Year
  Sex: Male
  Weight: 70 kg

DRUGS (9)
  1. KALIUM [Concomitant]
     Active Substance: POTASSIUM CHLORIDE
     Indication: HYPOKALAEMIA
     Dosage: 2 DOSES
     Route: 048
  2. MARCUMAR [Concomitant]
     Active Substance: PHENPROCOUMON
     Route: 065
  3. ZYTIGA [Suspect]
     Active Substance: ABIRATERONE ACETATE
     Indication: PROSTATE CANCER
     Route: 048
     Dates: start: 20180126, end: 20180423
  4. ZOMETA [Concomitant]
     Active Substance: ZOLEDRONIC ACID
     Indication: METASTASES TO BONE
     Route: 042
     Dates: start: 201602
  5. SIMVASTATIN. [Concomitant]
     Active Substance: SIMVASTATIN
     Indication: BLOOD CHOLESTEROL ABNORMAL
     Dosage: HALF A DOSE
     Route: 048
  6. TORASEMID [Concomitant]
     Active Substance: TORSEMIDE
     Indication: HYPERTENSION
     Dosage: 1 AND HALF DOSE DAILY
     Route: 048
  7. PREDNISONE. [Concomitant]
     Active Substance: PREDNISONE
     Route: 048
  8. LOSARTAN. [Concomitant]
     Active Substance: LOSARTAN
     Indication: HYPERTENSION
     Route: 048
  9. FIRMAGON [Concomitant]
     Active Substance: DEGARELIX ACETATE
     Indication: PROSTATE CANCER
     Route: 058
     Dates: start: 201609

REACTIONS (2)
  - General physical health deterioration [Unknown]
  - Cardiac failure [Recovered/Resolved]

NARRATIVE: CASE EVENT DATE: 20180514
